FAERS Safety Report 15308868 (Version 2)
Quarter: 2018Q3

REPORT INFORMATION
  Report Type: Spontaneous
  Country: US (occurrence: US)
  Receive Date: 20180822
  Receipt Date: 20180823
  Transmission Date: 20181010
  Serious: Yes (Hospitalization)
  Sender: FDA-Public Use
  Company Number: US-BIOGEN-2018BI00623111

PATIENT
  Sex: Male

DRUGS (1)
  1. AVONEX [Suspect]
     Active Substance: INTERFERON BETA-1A
     Indication: MULTIPLE SCLEROSIS
     Route: 065
     Dates: start: 20030803

REACTIONS (12)
  - Feeling abnormal [Unknown]
  - Dehydration [Unknown]
  - Abdominal pain [Unknown]
  - Asthenia [Unknown]
  - Hypokalaemia [Unknown]
  - Fatigue [Unknown]
  - Diarrhoea [Unknown]
  - Nausea [Unknown]
  - Hyponatraemia [Unknown]
  - Vomiting [Unknown]
  - Device malfunction [Unknown]
  - Drug dose omission [Unknown]
